FAERS Safety Report 7798521-7 (Version None)
Quarter: 2011Q4

REPORT INFORMATION
  Report Type: 
  Country: None (occurrence: None)
  Receive Date: 20111005
  Receipt Date: 20110926
  Transmission Date: 20120403
  Serious: Yes (Other)
  Sender: FDA-Public Use
  Company Number: US-ASTRAZENECA-2011SE57685

PATIENT
  Age: 60 Year
  Sex: Female
  Weight: 106.6 kg

DRUGS (11)
  1. SYNTHROID [Concomitant]
  2. MS CONTIN [Concomitant]
     Indication: PAIN
     Dosage: 30 MG MORNING AND 2 AT NIGHT
  3. SEROQUEL [Suspect]
     Route: 048
     Dates: start: 20090101
  4. DESYREL [Concomitant]
     Indication: DEPRESSION
  5. KLONOPIN [Concomitant]
     Indication: TREMOR
  6. SEROQUEL [Suspect]
     Indication: BIPOLAR I DISORDER
     Route: 048
     Dates: start: 20010101
  7. COREG [Concomitant]
  8. COUNTER MEDICATION [Concomitant]
     Indication: GASTROINTESTINAL MOTILITY DISORDER
  9. NORVASC [Concomitant]
  10. LASIX [Concomitant]
  11. ESTRACE [Concomitant]
     Indication: HORMONE REPLACEMENT THERAPY

REACTIONS (3)
  - WEIGHT INCREASED [None]
  - MALAISE [None]
  - MULTIPLE SCLEROSIS [None]
